FAERS Safety Report 10327749 (Version 2)
Quarter: 2014Q3

REPORT INFORMATION
  Report Type: Spontaneous
  Country: US (occurrence: US)
  Receive Date: 20140721
  Receipt Date: 20140721
  Transmission Date: 20150326
  Serious: Yes (Hospitalization)
  Sender: FDA-Public Use
  Company Number: US-ACTELION-A-US2014-100308

PATIENT
  Age: 41 Year
  Sex: Female

DRUGS (4)
  1. VENTAVIS [Suspect]
     Active Substance: ILOPROST
     Dosage: 5 MCG, 6-9X/DAY
     Route: 055
  2. LETAIRIS [Concomitant]
     Active Substance: AMBRISENTAN
  3. VENTAVIS [Suspect]
     Active Substance: ILOPROST
     Indication: COR PULMONALE CHRONIC
     Dosage: 2.5 MCG, 6-9X/DAY
     Route: 048
     Dates: start: 20140606
  4. COUMADIN [Concomitant]
     Active Substance: WARFARIN SODIUM

REACTIONS (7)
  - Influenza [Unknown]
  - Throat irritation [Unknown]
  - Cough [Unknown]
  - Dizziness [Unknown]
  - Memory impairment [Unknown]
  - Hypotension [Unknown]
  - Laryngeal pain [Unknown]

NARRATIVE: CASE EVENT DATE: 201407
